FAERS Safety Report 5129298-1 (Version None)
Quarter: 2006Q4

REPORT INFORMATION
  Report Type: 
  Country: None (occurrence: None)
  Receive Date: 20061011
  Receipt Date: 20060925
  Transmission Date: 20070319
  Serious: Yes (Life-Threatening, Hospitalization)
  Sender: FDA-Public Use
  Company Number: DSA_28765_2006

PATIENT
  Age: 26 Year
  Sex: Female

DRUGS (2)
  1. TAVOR /00273201/ [Suspect]
     Dosage: 125 MG ONCE PO
     Route: 048
     Dates: start: 20060922, end: 20060922
  2. TAXILAN / 00162501/ [Suspect]
     Dosage: 2000 MG ONCE PO
     Route: 048
     Dates: start: 20060922, end: 20060922

REACTIONS (4)
  - MULTIPLE DRUG OVERDOSE INTENTIONAL [None]
  - SOMNOLENCE [None]
  - SUICIDE ATTEMPT [None]
  - VOMITING [None]
